FAERS Safety Report 14232329 (Version 1)
Quarter: 2017Q4

REPORT INFORMATION
  Report Type: Spontaneous
  Country: DE (occurrence: DE)
  Receive Date: 20171128
  Receipt Date: 20171128
  Transmission Date: 20180321
  Serious: Yes (Hospitalization, Other)
  Sender: FDA-Public Use
  Company Number: DE-ABBVIE-17K-062-2139780-00

PATIENT
  Age: 23 Year
  Sex: Female

DRUGS (11)
  1. SALOFALK GRANU-STIX [Concomitant]
  2. SALOFALK GRANU-STIX [Concomitant]
     Route: 054
  3. CALCIGEN D [Concomitant]
     Active Substance: CALCIUM CARBONATE\CHOLECALCIFEROL
     Indication: PRODUCT USED FOR UNKNOWN INDICATION
  4. CLAVERSAL [Concomitant]
     Active Substance: MESALAMINE
     Indication: PROCTITIS
     Route: 054
  5. HUMIRA [Suspect]
     Active Substance: ADALIMUMAB
     Indication: CROHN^S DISEASE
     Route: 058
     Dates: start: 20170420, end: 2017
  6. SALOFALK GRANU-STIX [Concomitant]
     Indication: ABDOMINAL PAIN
     Route: 048
  7. EUTHYROX [Concomitant]
     Active Substance: LEVOTHYROXINE SODIUM
     Indication: PRODUCT USED FOR UNKNOWN INDICATION
  8. SALOFALK [Concomitant]
     Active Substance: MESALAMINE
     Indication: PRODUCT USED FOR UNKNOWN INDICATION
  9. BUDENOFALK [Concomitant]
     Active Substance: BUDESONIDE
     Indication: PRODUCT USED FOR UNKNOWN INDICATION
     Route: 048
  10. HUMIRA [Suspect]
     Active Substance: ADALIMUMAB
     Route: 058
     Dates: start: 201707, end: 201709
  11. PANTOZOL [Concomitant]
     Active Substance: PANTOPRAZOLE SODIUM
     Indication: GASTROOESOPHAGEAL REFLUX DISEASE
     Route: 048

REACTIONS (14)
  - Cytomegalovirus colitis [Unknown]
  - Herpes simplex meningoencephalitis [Recovered/Resolved]
  - Hypokalaemia [Unknown]
  - Infection [Unknown]
  - Frequent bowel movements [Unknown]
  - Pleocytosis [Unknown]
  - Myelitis [Unknown]
  - Meningitis aseptic [Unknown]
  - General physical health deterioration [Recovering/Resolving]
  - Arthropod sting [Unknown]
  - Headache [Unknown]
  - Staphylococcal infection [Unknown]
  - Crohn^s disease [Unknown]
  - Infection [Recovering/Resolving]

NARRATIVE: CASE EVENT DATE: 2017
